FAERS Safety Report 9592530 (Version 1)
Quarter: 2013Q4

REPORT INFORMATION
  Report Type: Spontaneous
  Country: FR (occurrence: FR)
  Receive Date: 20131004
  Receipt Date: 20131004
  Transmission Date: 20140711
  Serious: Yes (Other)
  Sender: FDA-Public Use
  Company Number: FR-JNJFOC-20130917552

PATIENT
  Age: 24 Year
  Sex: Female

DRUGS (5)
  1. REMICADE [Suspect]
     Indication: CROHN^S DISEASE
     Route: 042
     Dates: start: 20120227
  2. REMICADE [Suspect]
     Indication: CROHN^S DISEASE
     Dosage: 12TH COURSE OF INFLIXIMAB INFUSION IN TOTAL
     Route: 042
     Dates: start: 20130828, end: 20130828
  3. REMICADE [Suspect]
     Indication: CROHN^S DISEASE
     Dosage: 4TH COURSE OF INFLIXIMAB INFUSION IN TOTAL
     Route: 042
     Dates: start: 201304
  4. SOLUMEDROL (METHYLPREDNISOLONE SODIUM SUCCINATE) [Suspect]
     Indication: PRODUCT USED FOR UNKNOWN INDICATION
     Route: 042
     Dates: start: 20130828
  5. POLARAMINE (DEXCHLORPHENIRAMINE MALEATE) [Suspect]
     Indication: PRODUCT USED FOR UNKNOWN INDICATION
     Dosage: FROM 27-FEB-2013 (TO BE CLARIFIED)
     Route: 042
     Dates: start: 20130828

REACTIONS (5)
  - Anaphylactoid reaction [Recovered/Resolved]
  - Hypotension [Recovered/Resolved]
  - Hot flush [Recovered/Resolved]
  - Tachycardia [Recovered/Resolved]
  - Infusion related reaction [Recovered/Resolved]
